FAERS Safety Report 4462678-6 (Version None)
Quarter: 2004Q3

REPORT INFORMATION
  Report Type: 
  Country: None (occurrence: None)
  Receive Date: 20040927
  Receipt Date: 20040910
  Transmission Date: 20050211
  Serious: Yes (Hospitalization)
  Sender: FDA-Public Use
  Company Number: ATO-04-0799

PATIENT
  Sex: Female

DRUGS (5)
  1. TRISENOX [Suspect]
     Indication: MYELODYSPLASTIC SYNDROME
     Dosage: (0.25 MG/KG, BIW)
     Dates: start: 20040816
  2. MACRODANTIN [Concomitant]
  3. ALLOPURINOL [Concomitant]
  4. COREG [Concomitant]
  5. LASIX [Concomitant]

REACTIONS (3)
  - CARDIOMEGALY [None]
  - CARDIOMYOPATHY [None]
  - PLEURAL EFFUSION [None]
